FAERS Safety Report 17687110 (Version 1)
Quarter: 2020Q2

REPORT INFORMATION
  Report Type: Report from Study
  Country: US (occurrence: US)
  Receive Date: 20200421
  Receipt Date: 20200421
  Transmission Date: 20200714
  Serious: Yes (Hospitalization, Other)
  Sender: FDA-Public Use
  Company Number: US-ROCHE-2032751

PATIENT
  Age: 55 Year
  Sex: Male
  Weight: 136.2 kg

DRUGS (8)
  1. AMPYRA [Concomitant]
     Active Substance: DALFAMPRIDINE
  2. INSULIN [Concomitant]
     Active Substance: INSULIN NOS
     Indication: DIABETES MELLITUS
     Route: 058
  3. OXYCODONE [Concomitant]
     Active Substance: OXYCODONE
     Indication: BACK PAIN
  4. OCREVUS [Suspect]
     Active Substance: OCRELIZUMAB
     Indication: RELAPSING MULTIPLE SCLEROSIS
     Dosage: PRESCRIBED WITH TWO 300 MG IV INFUSION TO BE ADMINISTERED ON DAY 1 AND DAY 15 FOLLOWED BY SUBSEQUENT
     Route: 042
     Dates: start: 20170905, end: 201709
  5. OCREVUS [Suspect]
     Active Substance: OCRELIZUMAB
     Dosage: SECOND HALF OF OCREVUS INFUSION
     Route: 042
     Dates: start: 20171218
  6. OCREVUS [Suspect]
     Active Substance: OCRELIZUMAB
     Route: 042
     Dates: start: 201801, end: 201801
  7. CYCLOBENZAPRINE. [Concomitant]
     Active Substance: CYCLOBENZAPRINE
  8. PROVIGIL [Concomitant]
     Active Substance: MODAFINIL

REACTIONS (17)
  - Chest injury [Recovering/Resolving]
  - Pain [Not Recovered/Not Resolved]
  - Medication error [Unknown]
  - Road traffic accident [Unknown]
  - Concussion [Unknown]
  - Skin abrasion [Unknown]
  - Contusion [Unknown]
  - Feeling cold [Recovered/Resolved]
  - Multiple injuries [Not Recovered/Not Resolved]
  - Weight decreased [Recovered/Resolved]
  - Sepsis [Recovered/Resolved]
  - Rib fracture [Recovering/Resolving]
  - Multiple sclerosis relapse [Not Recovered/Not Resolved]
  - Skin discolouration [Not Recovered/Not Resolved]
  - Chest pain [Unknown]
  - Wound [Unknown]
  - Lower limb fracture [Recovered/Resolved]

NARRATIVE: CASE EVENT DATE: 20170917
